FAERS Safety Report 6462192-2 (Version None)
Quarter: 2009Q4

REPORT INFORMATION
  Report Type: 
  Country: None (occurrence: None)
  Receive Date: 20091130
  Receipt Date: 20091103
  Transmission Date: 20100525
  Serious: Yes (Hospitalization, Other)
  Sender: FDA-Public Use
  Company Number: GB-BAYER-200938210GPV

PATIENT
  Age: 71 Year
  Sex: Female

DRUGS (10)
  1. METFORMIN HCL [Interacting]
     Indication: DIABETES MELLITUS
     Dosage: UNIT DOSE: 1 G
  2. ASPIRIN [Suspect]
     Indication: DRUG USE FOR UNKNOWN INDICATION
  3. ATENOLOL [Suspect]
     Indication: DRUG USE FOR UNKNOWN INDICATION
  4. CLOPIDOGREL [Suspect]
     Indication: DRUG USE FOR UNKNOWN INDICATION
  5. ALLOPURINOL [Suspect]
     Indication: DRUG USE FOR UNKNOWN INDICATION
  6. BENDROFLUMETHIAZIDE [Suspect]
     Indication: DRUG USE FOR UNKNOWN INDICATION
  7. DOXAZOSIN [Suspect]
     Indication: DRUG USE FOR UNKNOWN INDICATION
  8. GLICLAZIDE [Interacting]
     Indication: DIABETES MELLITUS
     Dosage: UNIT DOSE: 80 MG
  9. IRBESARTAN [Suspect]
     Indication: DRUG USE FOR UNKNOWN INDICATION
  10. PERINDOPRIL [Suspect]
     Indication: DRUG USE FOR UNKNOWN INDICATION

REACTIONS (3)
  - HYPOGLYCAEMIA [None]
  - LACTIC ACIDOSIS [None]
  - RENAL FAILURE ACUTE [None]
